FAERS Safety Report 21452812 (Version 5)
Quarter: 2022Q4

REPORT INFORMATION
  Report Type: Report from Study
  Country: US (occurrence: None)
  Receive Date: 20221013
  Receipt Date: 20221208
  Transmission Date: 20230113
  Serious: Yes (Death, Hospitalization)
  Sender: FDA-Public Use
  Company Number: US-ROCHE-3195731

PATIENT
  Age: 84 Year
  Sex: Female
  Weight: 50.8 kg

DRUGS (6)
  1. CEVOSTAMAB [Suspect]
     Active Substance: CEVOSTAMAB
     Indication: Plasma cell myeloma
     Dosage: ON 28/SEP/2022 AT 10:45 AM, HE STARTED THE MOST RECENT DOSE OF CEVOSTAMAB (160MG) PRIOR TO AE/SAE. A
     Route: 042
     Dates: start: 20220815
  2. TOCILIZUMAB [Suspect]
     Active Substance: TOCILIZUMAB
     Indication: Plasma cell myeloma
     Route: 042
     Dates: start: 20220818
  3. TOCILIZUMAB [Concomitant]
     Active Substance: TOCILIZUMAB
     Route: 042
     Dates: start: 20221005, end: 20221005
  4. DULOXETINE [Concomitant]
     Active Substance: DULOXETINE
     Indication: Anxiety
     Route: 048
     Dates: start: 20190413
  5. ASPIRIN [Concomitant]
     Active Substance: ASPIRIN
     Route: 048
  6. SODIUM CHLORIDE [Concomitant]
     Active Substance: SODIUM CHLORIDE
     Route: 040
     Dates: start: 20221005, end: 20221005

REACTIONS (2)
  - Haemophagocytic lymphohistiocytosis [Fatal]
  - Confusional state [Not Recovered/Not Resolved]

NARRATIVE: CASE EVENT DATE: 20221005
